FAERS Safety Report 6462103-X (Version None)
Quarter: 2009Q4

REPORT INFORMATION
  Report Type: 
  Country: None (occurrence: None)
  Receive Date: 20091130
  Receipt Date: 20091119
  Transmission Date: 20100525
  Serious: Yes (Hospitalization)
  Sender: FDA-Public Use
  Company Number: IT-ASTRAZENECA-2009SE18562

PATIENT
  Age: 27085 Day
  Sex: Female

DRUGS (6)
  1. ZESTORETIC [Suspect]
     Dosage: 20+12.5 MG
     Route: 048
     Dates: start: 20080919, end: 20090919
  2. AMLODIPINE [Suspect]
     Dates: start: 20080919, end: 20090919
  3. CARVEDILOL [Suspect]
     Dates: start: 20080919, end: 20090919
  4. ALLOPURINOL [Concomitant]
  5. LORAZEPAM [Concomitant]
  6. ASPIRIN [Concomitant]
     Route: 048

REACTIONS (2)
  - HYPOTENSION [None]
  - PRESYNCOPE [None]
